FAERS Safety Report 18707759 (Version 3)
Quarter: 2021Q1

REPORT INFORMATION
  Report Type: Report from Study
  Country: US (occurrence: US)
  Receive Date: 20210106
  Receipt Date: 20210330
  Transmission Date: 20210419
  Serious: Yes (Hospitalization)
  Sender: FDA-Public Use
  Company Number: US-EISAI MEDICAL RESEARCH-EC-2020-085307

PATIENT
  Age: 72 Year
  Sex: Male

DRUGS (5)
  1. LENVIMA [Suspect]
     Active Substance: LENVATINIB
     Indication: RENAL CELL CARCINOMA
     Route: 048
     Dates: start: 20201210, end: 20201223
  2. LENVIMA [Suspect]
     Active Substance: LENVATINIB
     Dosage: MISSED 2 DOSES
     Route: 048
     Dates: start: 20201225, end: 202103
  3. EVEROLIMUS. [Concomitant]
     Active Substance: EVEROLIMUS
  4. AMLODIPINE [Concomitant]
     Active Substance: AMLODIPINE BESYLATE
  5. LOSARTAN. [Concomitant]
     Active Substance: LOSARTAN

REACTIONS (10)
  - Malaise [Unknown]
  - Fatigue [Not Recovered/Not Resolved]
  - Nausea [Unknown]
  - Blood pressure increased [Not Recovered/Not Resolved]
  - Vomiting [Recovered/Resolved]
  - Sleep disorder [Recovering/Resolving]
  - Constipation [Recovering/Resolving]
  - Decreased appetite [Unknown]
  - Dehydration [Recovered/Resolved]
  - Abdominal pain [Recovered/Resolved]

NARRATIVE: CASE EVENT DATE: 202012
